FAERS Safety Report 9524144 (Version 1)
Quarter: 2013Q3

REPORT INFORMATION
  Report Type: Spontaneous
  Country: US (occurrence: None)
  Receive Date: 20130912
  Receipt Date: 20130912
  Transmission Date: 20140515
  Serious: Yes (Life-Threatening, Hospitalization, Disabling)
  Sender: FDA-Public Use
  Company Number: None

PATIENT
  Age: 34 Year
  Sex: Female
  Weight: 61.24 kg

DRUGS (1)
  1. MEDROXYPROGESTERONE ACETATE [Suspect]
     Indication: CONTRACEPTION
     Route: 030

REACTIONS (12)
  - Osteoporosis [None]
  - Alopecia [None]
  - Weight increased [None]
  - Dyspareunia [None]
  - Libido decreased [None]
  - Pain in extremity [None]
  - Menorrhagia [None]
  - Dysmenorrhoea [None]
  - Hair growth abnormal [None]
  - Depression [None]
  - Bone cancer [None]
  - Impaired healing [None]
